FAERS Safety Report 3949034 (Version 2)
Quarter: 2019Q2

REPORT INFORMATION
  Report Type: Spontaneous
  Country: FR (occurrence: FR)
  Receive Date: 20030515
  Receipt Date: 20190614
  Transmission Date: 20190711
  Serious: Yes (Hospitalization, Other)
  Sender: FDA-Public Use
  Company Number: PHRM2003FR01400

PATIENT
  Age: 44 Year
  Sex: Male

DRUGS (12)
  1. GLUCOR [Suspect]
     Active Substance: ACARBOSE
     Indication: UNEVALUABLE EVENT
     Dosage: 3 DF, QD
     Route: 048
  2. TAHOR [Suspect]
     Active Substance: ATORVASTATIN CALCIUM
     Indication: UNEVALUABLE EVENT
     Dosage: 1 DF, QD
     Route: 048
  3. NISISCO [Suspect]
     Active Substance: HYDROCHLOROTHIAZIDE\VALSARTAN
     Dosage: 1 DF, QD
     Route: 048
  4. DAONIL [Suspect]
     Active Substance: GLYBURIDE
     Indication: TYPE 2 DIABETES MELLITUS
     Dosage: UNK
     Route: 065
  5. DAONIL [Suspect]
     Active Substance: GLYBURIDE
     Dosage: 3 DF, QD
     Route: 048
  6. FLODIL [FELODIPINE] [Suspect]
     Active Substance: FELODIPINE
     Indication: UNEVALUABLE EVENT
     Dosage: 5 MG, QD
     Route: 048
  7. CELEBREX [Suspect]
     Active Substance: CELECOXIB
     Indication: UNEVALUABLE EVENT
     Dosage: UNK UNK, QD
     Route: 048
  8. NISISCO [Suspect]
     Active Substance: HYDROCHLOROTHIAZIDE\VALSARTAN
     Indication: HYPERTENSION
     Dosage: UNK
     Route: 065
  9. GLUCOR [Suspect]
     Active Substance: ACARBOSE
     Dosage: 1 DF, QD
     Route: 048
  10. CELEBREX [Suspect]
     Active Substance: CELECOXIB
     Dosage: 2 DF, QD
     Route: 048
     Dates: start: 20030225, end: 20030225
  11. TAHOR [Suspect]
     Active Substance: ATORVASTATIN CALCIUM
     Dosage: UNK
     Route: 048
  12. TRINITRINE [Concomitant]
     Active Substance: NITROGLYCERIN
     Indication: CHEST PAIN
     Dosage: UNK UNK, QD
     Route: 048
     Dates: start: 20030225, end: 20030225

REACTIONS (2)
  - Angina pectoris [Unknown]
  - Chest pain [Recovered/Resolved]

NARRATIVE: CASE EVENT DATE: 20030225
